FAERS Safety Report 12602720 (Version 2)
Quarter: 2016Q3

REPORT INFORMATION
  Report Type: Spontaneous
  Country: US (occurrence: US)
  Receive Date: 20160728
  Receipt Date: 20160801
  Transmission Date: 20161109
  Serious: Yes (Hospitalization)
  Sender: FDA-Public Use
  Company Number: US-BAYER-2016-141691

PATIENT
  Age: 51 Year
  Sex: Female

DRUGS (1)
  1. ACETYLSALICYLIC ACID({=100 MG) [Suspect]
     Active Substance: ASPIRIN
     Indication: ARTHRALGIA
     Dosage: 5 G, (TAKEN 5 G IN THE PRECEDING 48 HOURS)

REACTIONS (6)
  - Generalised tonic-clonic seizure [None]
  - Tachypnoea [None]
  - Toxicity to various agents [None]
  - Confusional state [None]
  - Tangentiality [None]
  - Overdose [None]
